FAERS Safety Report 23768741 (Version 1)
Quarter: 2024Q2

REPORT INFORMATION
  Report Type: Spontaneous
  Country: US (occurrence: None)
  Receive Date: 20240420
  Receipt Date: 20240420
  Transmission Date: 20240716
  Serious: Yes (Hospitalization)
  Sender: FDA-Public Use
  Company Number: None

PATIENT
  Age: 49 Year
  Sex: Male
  Weight: 90.7 kg

DRUGS (3)
  1. SPRYCEL [Suspect]
     Active Substance: DASATINIB
     Dates: end: 20240116
  2. PREDNISONE [Suspect]
     Active Substance: PREDNISONE
     Dates: end: 20240115
  3. PREDNISONE [Suspect]
     Active Substance: PREDNISONE

REACTIONS (3)
  - Febrile neutropenia [None]
  - Sepsis [None]
  - Therapy interrupted [None]

NARRATIVE: CASE EVENT DATE: 20240129
